FAERS Safety Report 22127842 (Version 1)
Quarter: 2023Q1

REPORT INFORMATION
  Report Type: Spontaneous
  Country: JP (occurrence: JP)
  Receive Date: 20230323
  Receipt Date: 20230323
  Transmission Date: 20230418
  Serious: No
  Sender: FDA-Public Use
  Company Number: JP-ALKEM LABORATORIES LIMITED-JP-ALKEM-2023-01913

PATIENT
  Age: 8 Decade
  Sex: Female

DRUGS (4)
  1. LEVETIRACETAM [Suspect]
     Active Substance: LEVETIRACETAM
     Indication: Glossopharyngeal neuralgia
     Dosage: 500 MILLIGRAM, QD (TABLET DAILY)
     Route: 048
  2. LEVETIRACETAM [Suspect]
     Active Substance: LEVETIRACETAM
     Dosage: 1000 MILLIGRAM, QD (DAILY)
     Route: 048
  3. Microgabalin [Concomitant]
     Indication: Neck pain
     Dosage: 10 MG/DAY
     Route: 048
  4. Microgabalin [Concomitant]
     Dosage: 15 MG/DAY
     Route: 048

REACTIONS (1)
  - Off label use [Unknown]
